FAERS Safety Report 24660500 (Version 1)
Quarter: 2024Q4

REPORT INFORMATION
  Report Type: Spontaneous
  Country: GR (occurrence: GR)
  Receive Date: 20241125
  Receipt Date: 20241125
  Transmission Date: 20250115
  Serious: Yes (Other)
  Sender: MYLAN
  Company Number: None

PATIENT
  Age: 45 Year
  Sex: Female
  Weight: 65 kg

DRUGS (5)
  1. VENLAFAXINE HYDROCHLORIDE [Suspect]
     Active Substance: VENLAFAXINE HYDROCHLORIDE
     Indication: Migraine prophylaxis
     Dosage: 1 DOSAGE FORM, QD (1X1 FOR 1 WEEK)
     Route: 048
     Dates: start: 20240512, end: 20240518
  2. VENLAFAXINE HYDROCHLORIDE [Suspect]
     Active Substance: VENLAFAXINE HYDROCHLORIDE
     Indication: Migraine prophylaxis
     Dosage: 1 DOSAGE FORM, QD
     Route: 048
     Dates: start: 20240519, end: 20240912
  3. LEVOCETIRIZINE [Concomitant]
     Active Substance: LEVOCETIRIZINE
     Indication: Dyspnoea
     Dosage: 1 DOSAGE FORM, QD
     Route: 048
     Dates: start: 20240901
  4. GYNO-TARDYFERON [Concomitant]
     Indication: Alopecia
     Dosage: 1 DOSAGE FORM, QD
     Route: 065
     Dates: start: 20240901
  5. GYNO-TARDYFERON [Concomitant]
     Indication: Blood iron decreased

REACTIONS (3)
  - Contusion [Not Recovered/Not Resolved]
  - Alopecia [Not Recovered/Not Resolved]
  - Blood cholesterol increased [Not Recovered/Not Resolved]

NARRATIVE: CASE EVENT DATE: 20240512
